FAERS Safety Report 4879497-9 (Version None)
Quarter: 2006Q1

REPORT INFORMATION
  Report Type: 
  Country: None (occurrence: None)
  Receive Date: 20060110
  Receipt Date: 20041223
  Transmission Date: 20060701
  Serious: Yes (Other)
  Sender: FDA-Public Use
  Company Number: GBWYE273710DEC04

PATIENT
  Age: 21 Year
  Sex: Male

DRUGS (3)
  1. MYAMBUTOL [Suspect]
     Indication: TUBERCULOSIS
     Dosage: 800MG, 047
     Dates: start: 20041130, end: 20041203
  2. RIFATER [Suspect]
     Indication: TUBERCULOSIS
     Dosage: 5 TABS, 047
     Dates: start: 20041130, end: 20041203
  3. PYRIDOXINE HCL [Suspect]
     Indication: TUBERCULOSIS
     Dosage: 50 MG/WEEK/047
     Dates: start: 20041130, end: 20041201

REACTIONS (2)
  - ABDOMINAL PAIN [None]
  - PAIN [None]
